FAERS Safety Report 4744331-4 (Version None)
Quarter: 2005Q3

REPORT INFORMATION
  Report Type: 
  Country: None (occurrence: None)
  Receive Date: 20050811
  Receipt Date: 20050811
  Transmission Date: 20060218
  Serious: No
  Sender: FDA-Public Use
  Company Number: None

PATIENT
  Age: 27 Year
  Sex: Female
  Weight: 49.8957 kg

DRUGS (1)
  1. LEXAPRO [Suspect]
     Indication: ALOPECIA EFFLUVIUM
     Dosage: 1   DAY    ORAL
     Route: 048

REACTIONS (1)
  - ALOPECIA [None]
